FAERS Safety Report 4531962-X (Version None)
Quarter: 2004Q4

REPORT INFORMATION
  Report Type: 
  Country: None (occurrence: None)
  Receive Date: 20041217
  Receipt Date: 20041206
  Transmission Date: 20050328
  Serious: Yes (Other)
  Sender: FDA-Public Use
  Company Number: 1515-079

PATIENT
  Age: 25 Year
  Sex: Male

DRUGS (5)
  1. VENOFER [Suspect]
     Indication: ANAEMIA
     Dosage: 200MG IV
     Route: 042
     Dates: end: 20040819
  2. VENOFER [Suspect]
     Indication: INFLAMMATION
     Dosage: 200MG IV
     Route: 042
     Dates: end: 20040819
  3. AZATHIOPRINE [Concomitant]
  4. PREDNISOLONE [Concomitant]
  5. IMMUNE GLOBULIN INTRAVENOUS (HUMAN) [Concomitant]

REACTIONS (2)
  - CONDITION AGGRAVATED [None]
  - THROMBOCYTOPENIA [None]
